FAERS Safety Report 12452384 (Version 1)
Quarter: 2016Q2

REPORT INFORMATION
  Report Type: Spontaneous
  Country: US (occurrence: US)
  Receive Date: 20160609
  Receipt Date: 20160609
  Transmission Date: 20160815
  Serious: No
  Sender: FDA-Public Use
  Company Number: US-ASTELLAS-2015US046898

PATIENT
  Sex: Male

DRUGS (1)
  1. PROGRAF [Suspect]
     Active Substance: TACROLIMUS\TACROLIMUS ANHYDROUS
     Indication: NEPHROTIC SYNDROME
     Dosage: 4 MILLIGRAMS IN THE MORNING AND 3 MILLIGRAMS IN THE EVENING
     Route: 048

REACTIONS (1)
  - Off label use [Unknown]
